FAERS Safety Report 16753726 (Version 2)
Quarter: 2019Q3

REPORT INFORMATION
  Report Type: Spontaneous
  Country: SK (occurrence: SK)
  Receive Date: 20190829
  Receipt Date: 20190912
  Transmission Date: 20191005
  Serious: Yes (Life-Threatening, Other)
  Sender: FDA-Public Use
  Company Number: SK-ALK-ABELLO A/S-2019AA002991

PATIENT

DRUGS (4)
  1. KETOTIFEN [Concomitant]
     Active Substance: KETOTIFEN
     Indication: RHINITIS ALLERGIC
     Dosage: 2 TBL +1
     Route: 048
     Dates: start: 20160601
  2. RAGWIZAX [Suspect]
     Active Substance: AMBROSIA ARTEMISIIFOLIA POLLEN
     Indication: SEASONAL ALLERGY
     Dosage: 1 TBL
     Dates: start: 20190613, end: 20190614
  3. DESLORATADINE. [Concomitant]
     Active Substance: DESLORATADINE
     Indication: RHINITIS ALLERGIC
     Dosage: 1+1 TBL
     Route: 048
     Dates: start: 20160601
  4. MONTELUKAST [Concomitant]
     Active Substance: MONTELUKAST SODIUM
     Indication: RHINITIS ALLERGIC
     Dosage: 1 +1 TBL
     Route: 048
     Dates: start: 20160601

REACTIONS (5)
  - Choking [Recovered/Resolved]
  - Oral pruritus [Recovered/Resolved]
  - Pharyngeal swelling [Recovered/Resolved]
  - Throat irritation [Recovered/Resolved]
  - Urticaria [Recovered/Resolved]

NARRATIVE: CASE EVENT DATE: 20190613
